FAERS Safety Report 9500905 (Version 2)
Quarter: 2013Q3

REPORT INFORMATION
  Report Type: Spontaneous
  Country: CA (occurrence: CA)
  Receive Date: 20130905
  Receipt Date: 20130913
  Transmission Date: 20140515
  Serious: Yes (Other)
  Sender: FDA-Public Use
  Company Number: CA-ROCHE-1270391

PATIENT
  Sex: Male

DRUGS (2)
  1. XOLAIR [Suspect]
     Indication: ASTHMA
     Route: 058
     Dates: start: 20121203
  2. XOLAIR [Suspect]
     Route: 058
     Dates: start: 20130501

REACTIONS (5)
  - Pneumonia [Recovered/Resolved]
  - Malaise [Unknown]
  - Drug administered to patient of inappropriate age [Unknown]
  - Cough [Unknown]
  - Pyrexia [Unknown]
